APPROVED DRUG PRODUCT: DHC PLUS
Active Ingredient: ACETAMINOPHEN; CAFFEINE; DIHYDROCODEINE BITARTRATE
Strength: 356.4MG;30MG;16MG
Dosage Form/Route: CAPSULE;ORAL
Application: A088584 | Product #001
Applicant: PHARMACEUTICAL RESEARCH ASSOC INC
Approved: Mar 4, 1986 | RLD: No | RS: No | Type: DISCN